FAERS Safety Report 10308805 (Version 2)
Quarter: 2014Q3

REPORT INFORMATION
  Report Type: Spontaneous
  Country: GR (occurrence: GR)
  Receive Date: 20140716
  Receipt Date: 20140716
  Transmission Date: 20150326
  Serious: Yes (Hospitalization)
  Sender: FDA-Public Use
  Company Number: GR-BRISTOL-MYERS SQUIBB COMPANY-20984282

PATIENT
  Age: 3 Decade
  Sex: Female

DRUGS (1)
  1. SPRYCEL [Suspect]
     Active Substance: DASATINIB
     Indication: CHRONIC MYELOID LEUKAEMIA
     Route: 048

REACTIONS (5)
  - Pleural effusion [Recovered/Resolved]
  - Oxygen saturation decreased [Recovered/Resolved]
  - Splenomegaly [Recovered/Resolved]
  - Fluid retention [Recovered/Resolved]
  - Pyrexia [Recovered/Resolved]
